FAERS Safety Report 7920176-9 (Version None)
Quarter: 2011Q4

REPORT INFORMATION
  Report Type: 
  Country: None (occurrence: None)
  Receive Date: 20111117
  Receipt Date: 20111110
  Transmission Date: 20120403
  Serious: Yes (Hospitalization)
  Sender: FDA-Public Use
  Company Number: KR-SANOFI-AVENTIS-2011SA075244

PATIENT
  Age: 31 Year
  Sex: Female
  Weight: 53.1 kg

DRUGS (21)
  1. DEXAMETHASONE [Concomitant]
     Dates: start: 20111006
  2. RANITIDINE [Concomitant]
     Dates: start: 20110706, end: 20110708
  3. BISACODYL [Concomitant]
     Dates: start: 20110706, end: 20110712
  4. BEVACIZUMAB [Suspect]
     Indication: BREAST CANCER
     Dosage: DOSE: 15 MG/KG
     Route: 042
     Dates: start: 20110705, end: 20110705
  5. DEXAMETHASONE [Concomitant]
     Dates: start: 20110706
  6. CHLORPHENIRAMINE MALEATE [Concomitant]
     Dates: start: 20111004, end: 20111004
  7. DOCETAXEL [Suspect]
     Route: 042
     Dates: start: 20111004, end: 20111004
  8. BEVACIZUMAB [Suspect]
     Dosage: DOSE: 15 MG/KG
     Route: 042
     Dates: start: 20111025
  9. CISPLATIN [Suspect]
     Dosage: DOASE: 5 AUC
     Route: 042
     Dates: start: 20111004, end: 20111004
  10. RANITIDINE [Concomitant]
     Dates: start: 20111004, end: 20111004
  11. MAGNESIUM OXIDE [Concomitant]
     Dates: start: 20110706, end: 20110712
  12. DOCETAXEL [Suspect]
     Indication: BREAST CANCER
     Route: 042
     Dates: start: 20110705, end: 20110705
  13. RANITIDINE [Concomitant]
     Dates: end: 20110708
  14. DOCETAXEL [Suspect]
     Route: 042
     Dates: start: 20111025
  15. DEXAMETHASONE [Concomitant]
     Dates: start: 20111004, end: 20111004
  16. RANITIDINE [Concomitant]
     Dates: end: 20111006
  17. BEVACIZUMAB [Suspect]
     Dosage: DOSE: 15 MG/KG
     Route: 042
     Dates: start: 20111004, end: 20111004
  18. CISPLATIN [Suspect]
     Indication: BREAST CANCER
     Dosage: DOASE: 5 AUC
     Route: 042
     Dates: start: 20110705, end: 20110705
  19. CISPLATIN [Suspect]
     Dosage: DOASE: 5 AUC
     Route: 042
     Dates: start: 20111025
  20. DEXAMETHASONE [Concomitant]
     Dates: start: 20110706, end: 20110708
  21. CHLORPHENIRAMINE MALEATE [Concomitant]
     Dates: start: 20110706, end: 20110706

REACTIONS (2)
  - GINGIVITIS ULCERATIVE [None]
  - PERICORONITIS [None]
